FAERS Safety Report 21853759 (Version 1)
Quarter: 2023Q1

REPORT INFORMATION
  Report Type: Spontaneous
  Country: US (occurrence: None)
  Receive Date: 20230111
  Receipt Date: 20230111
  Transmission Date: 20230417
  Serious: Yes (Hospitalization)
  Sender: FDA-Public Use
  Company Number: None

PATIENT
  Sex: Female

DRUGS (2)
  1. DEFERASIROX [Suspect]
     Active Substance: DEFERASIROX
     Indication: Sickle cell disease
     Dosage: FREQUENCY : DAILY;?
     Route: 048
     Dates: start: 202211
  2. OXBRYTA [Concomitant]
     Active Substance: VOXELOTOR

REACTIONS (3)
  - Sickle cell anaemia with crisis [None]
  - Therapy interrupted [None]
  - Diarrhoea [None]
